FAERS Safety Report 9097904 (Version 4)
Quarter: 2014Q1

REPORT INFORMATION
  Report Type: Spontaneous
  Country: US (occurrence: US)
  Receive Date: 20130212
  Receipt Date: 20140123
  Transmission Date: 20141002
  Serious: No
  Sender: FDA-Public Use
  Company Number: US-PFIZER INC-2013053497

PATIENT
  Age: 79 Year
  Sex: Female
  Weight: 58.5 kg

DRUGS (5)
  1. CELEBREX [Suspect]
     Indication: RHEUMATOID ARTHRITIS
     Dosage: UNK
  2. ENBREL [Suspect]
     Indication: RHEUMATOID ARTHRITIS
     Dosage: UNK
  3. PREDNISOLONE [Suspect]
     Indication: RHEUMATOID ARTHRITIS
     Dosage: UNK
  4. REMICADE [Suspect]
     Indication: RHEUMATOID ARTHRITIS
     Dosage: UNK
  5. HUMIRA [Suspect]
     Indication: RHEUMATOID ARTHRITIS
     Dosage: UNK

REACTIONS (3)
  - Drug ineffective [Unknown]
  - Nausea [Unknown]
  - Vomiting [Unknown]
